FAERS Safety Report 7826609-0 (Version None)
Quarter: 2011Q4

REPORT INFORMATION
  Report Type: 
  Country: None (occurrence: None)
  Receive Date: 20111018
  Receipt Date: 20111005
  Transmission Date: 20120403
  Serious: Yes (Hospitalization)
  Sender: FDA-Public Use
  Company Number: CIP11002559

PATIENT
  Age: 78 Year
  Sex: Female

DRUGS (9)
  1. SPIRIVA [Concomitant]
  2. CALCIUM+D (CALCIUM, ERGOCALCIFEROL) [Concomitant]
  3. ACTONEL [Suspect]
     Indication: OSTEOPOROSIS
     Dosage: 150 MG ONCE MONTHLY, ORAL
     Route: 048
     Dates: start: 20100101
  4. HYDROCHLOROTHIAZIDE [Concomitant]
  5. VITAMIN A /00056001/ (RETINOL) [Concomitant]
  6. ACTONEL [Suspect]
     Indication: OSTEOPOROSIS
     Dosage: 35 MG ONCE WEEKLY, ORAL
     Route: 048
  7. DICLOFENAC SODIUM [Concomitant]
  8. SYNTHROID [Concomitant]
  9. FOLIC ACID [Concomitant]

REACTIONS (7)
  - PAIN [None]
  - ARTHRALGIA [None]
  - MUSCULAR WEAKNESS [None]
  - POST PROCEDURAL COMPLICATION [None]
  - INTESTINAL PERFORATION [None]
  - FEELING ABNORMAL [None]
  - IATROGENIC INJURY [None]
